FAERS Safety Report 6619801-4 (Version None)
Quarter: 2010Q1

REPORT INFORMATION
  Report Type: 
  Country: None (occurrence: None)
  Receive Date: 20100309
  Receipt Date: 20100305
  Transmission Date: 20100710
  Serious: Yes (Death, Hospitalization)
  Sender: FDA-Public Use
  Company Number: PHEH2010US02874

PATIENT
  Sex: Female

DRUGS (10)
  1. GLEEVEC [Suspect]
     Indication: NEOPLASM MALIGNANT
     Dosage: 400 MG, QD
     Route: 048
  2. COREG [Concomitant]
     Dosage: 6.25 MG, BID
  3. LISINOPRIL [Concomitant]
     Dosage: 20 MG, QD
  4. NEURONTIN [Concomitant]
     Dosage: 300 MG, QD
  5. LASIX [Concomitant]
     Dosage: UNK, PRN
  6. NORVASC [Concomitant]
     Dosage: 5 MG, QD
  7. SINEMET [Concomitant]
     Dosage: UNK, DAILY
  8. FERROUS SULFATE TAB [Concomitant]
     Dosage: UNK, UNK
  9. PRILOSEC [Concomitant]
     Dosage: UNK, UNK
  10. VALPROIC ACID [Concomitant]
     Dosage: UNK, UNK

REACTIONS (4)
  - GASTROINTESTINAL HAEMORRHAGE [None]
  - HYPOTENSION [None]
  - HYPOXIA [None]
  - PYREXIA [None]
